FAERS Safety Report 7673929-9 (Version None)
Quarter: 2011Q3

REPORT INFORMATION
  Report Type: 
  Country: None (occurrence: None)
  Receive Date: 20110810
  Receipt Date: 20110427
  Transmission Date: 20111222
  Serious: No
  Sender: FDA-Public Use
  Company Number: US-GLAXOSMITHKLINE-A0925548A

PATIENT
  Sex: Female
  Weight: 52.3 kg

DRUGS (4)
  1. PAXIL [Suspect]
     Indication: DEPRESSION
     Route: 048
     Dates: start: 20040101
  2. ZOLOFT [Suspect]
     Indication: DEPRESSION
     Dosage: 25MG PER DAY
     Route: 048
     Dates: start: 20110201
  3. PROZAC [Suspect]
     Indication: DEPRESSION
     Dosage: 50MG PER DAY
     Route: 048
     Dates: start: 20110101, end: 20110401
  4. TOPAMAX [Concomitant]
     Indication: MIGRAINE
     Route: 048

REACTIONS (11)
  - DEPRESSION [None]
  - ASTHENIA [None]
  - THERAPEUTIC RESPONSE DECREASED [None]
  - MENTAL DISORDER [None]
  - WITHDRAWAL SYNDROME [None]
  - CONFUSIONAL STATE [None]
  - HYPERTENSION [None]
  - SOCIAL AVOIDANT BEHAVIOUR [None]
  - ANXIETY [None]
  - OEDEMA PERIPHERAL [None]
  - DISTURBANCE IN ATTENTION [None]
